FAERS Safety Report 15992565 (Version 3)
Quarter: 2019Q2

REPORT INFORMATION
  Report Type: Report from Study
  Country: JP (occurrence: JP)
  Receive Date: 20190221
  Receipt Date: 20190604
  Transmission Date: 20190711
  Serious: Yes (Hospitalization)
  Sender: FDA-Public Use
  Company Number: JP-PFIZER INC-2019074182

PATIENT
  Age: 67 Year
  Sex: Female
  Weight: 63 kg

DRUGS (20)
  1. ALENDRONATE SODIUM. [Concomitant]
     Active Substance: ALENDRONATE SODIUM
     Route: 048
  2. VITAMINS NOS [Concomitant]
     Active Substance: VITAMINS
     Route: 048
  3. TETRAMIDE [Concomitant]
     Active Substance: MIANSERIN
     Dosage: UNK
     Route: 048
     Dates: start: 20170925
  4. PREDNISOLONE. [Concomitant]
     Active Substance: PREDNISOLONE
     Indication: RHEUMATOID ARTHRITIS
     Dosage: 6 MG, DAILY
     Route: 048
     Dates: end: 20170924
  5. VOLTAREN [Concomitant]
     Active Substance: DICLOFENAC SODIUM
  6. NEUROTROPIN [RABBIT VACCINIA EXTRACT] [Concomitant]
     Active Substance: ORYCTOLAGUS CUNICULUS SKIN
     Route: 048
  7. VOLTAREN [Concomitant]
     Active Substance: DICLOFENAC SODIUM
     Route: 048
  8. CLARITHROMYCIN. [Concomitant]
     Active Substance: CLARITHROMYCIN
     Route: 048
  9. NEXIUM [Concomitant]
     Active Substance: ESOMEPRAZOLE MAGNESIUM
     Route: 048
  10. OLMETEC [Concomitant]
     Active Substance: OLMESARTAN MEDOXOMIL
     Route: 048
  11. PREDNISOLONE. [Concomitant]
     Active Substance: PREDNISOLONE
     Dosage: 5 MG, DAILY
     Route: 048
     Dates: start: 20170925
  12. TRAMCET [Concomitant]
     Active Substance: ACETAMINOPHEN\TRAMADOL
     Route: 048
  13. RINLAXER [Concomitant]
     Active Substance: CHLORPHENESIN CARBAMATE
     Route: 048
  14. AMLODIN [Concomitant]
     Active Substance: AMLODIPINE BESYLATE
     Route: 048
  15. DESYREL [Concomitant]
     Active Substance: TRAZODONE HYDROCHLORIDE
     Route: 048
  16. XELJANZ [Suspect]
     Active Substance: TOFACITINIB CITRATE
     Indication: RHEUMATOID ARTHRITIS
     Dosage: 5 MG, 2X/DAY
     Route: 048
     Dates: start: 20161230, end: 20180722
  17. ZETIA [Concomitant]
     Active Substance: EZETIMIBE
     Route: 048
  18. MECOBALAMIN [Concomitant]
     Active Substance: METHYLCOBALAMIN
     Route: 048
  19. BROTIZOLAM [Concomitant]
     Active Substance: BROTIZOLAM
     Route: 048
  20. MUCODYNE [Concomitant]
     Active Substance: CARBOCYSTEINE
     Route: 048

REACTIONS (3)
  - Phrenic nerve paralysis [Recovering/Resolving]
  - Pneumonia pneumococcal [Recovering/Resolving]
  - Herpes zoster [Recovering/Resolving]

NARRATIVE: CASE EVENT DATE: 20180719
